FAERS Safety Report 18960424 (Version 1)
Quarter: 2021Q1

REPORT INFORMATION
  Report Type: Spontaneous
  Country: SA (occurrence: SA)
  Receive Date: 20210303
  Receipt Date: 20210303
  Transmission Date: 20210420
  Serious: Yes (Other)
  Sender: FDA-Public Use
  Company Number: SA-FLORIDAPHARMA-SA-2021FPPLIT00018

PATIENT
  Age: 3 Year
  Sex: Male
  Weight: 10 kg

DRUGS (9)
  1. MEMANTINE. [Interacting]
     Active Substance: MEMANTINE
     Indication: EPILEPTIC ENCEPHALOPATHY
     Route: 065
  2. VIGABATRIN. [Concomitant]
     Active Substance: VIGABATRIN
     Indication: MYOCLONUS
     Route: 065
  3. CLOBAZAM ATNAHS [Concomitant]
     Active Substance: CLOBAZAM
     Indication: MYOCLONUS
     Route: 065
  4. CLONAZEPAM. [Concomitant]
     Active Substance: CLONAZEPAM
     Indication: MYOCLONIC EPILEPSY
     Route: 065
  5. LEVETIRACETAM EXTENDED?RELEASE [Suspect]
     Active Substance: LEVETIRACETAM
     Indication: MYOCLONUS
     Route: 065
  6. PHENOBARBITAL. [Concomitant]
     Active Substance: PHENOBARBITAL
     Indication: MYOCLONUS
     Route: 065
  7. PREDNISONE. [Concomitant]
     Active Substance: PREDNISONE
     Indication: MYOCLONUS
     Route: 065
  8. LACOSAMIDE ACCORD [Interacting]
     Active Substance: LACOSAMIDE
     Indication: MYOCLONUS
     Route: 065
  9. TOPIRAMATE. [Concomitant]
     Active Substance: TOPIRAMATE
     Indication: MYOCLONUS
     Route: 065

REACTIONS (1)
  - Drug ineffective [Unknown]
